FAERS Safety Report 22314563 (Version 1)
Quarter: 2023Q2

REPORT INFORMATION
  Report Type: Spontaneous
  Country: GB (occurrence: GB)
  Receive Date: 20230512
  Receipt Date: 20230512
  Transmission Date: 20230721
  Serious: Yes (Hospitalization, Other)
  Sender: FDA-Public Use
  Company Number: GB-MHRA-MED-202304191437338320-CSHDY

PATIENT
  Age: 51 Year
  Sex: Female
  Weight: 107 kg

DRUGS (2)
  1. METHYLPREDNISOLONE [Suspect]
     Active Substance: METHYLPREDNISOLONE
     Indication: Osteoarthritis
     Route: 065
     Dates: start: 20230414, end: 20230414
  2. LIDOCAINE [Suspect]
     Active Substance: LIDOCAINE
     Indication: Osteoarthritis
     Route: 065
     Dates: start: 20230414, end: 20230414

REACTIONS (3)
  - Vomiting [Recovered/Resolved]
  - Headache [Unknown]
  - Hypertension [Unknown]

NARRATIVE: CASE EVENT DATE: 20230414
